FAERS Safety Report 8463376-4 (Version None)
Quarter: 2012Q2

REPORT INFORMATION
  Report Type: 
  Country: None (occurrence: None)
  Receive Date: 20120625
  Receipt Date: 20120618
  Transmission Date: 20120825
  Serious: Yes (Hospitalization, Other)
  Sender: FDA-Public Use
  Company Number: US-MERCK-1109USA00698

PATIENT
  Age: 80 Year
  Sex: Female

DRUGS (4)
  1. FOSAMAX PLUS D [Suspect]
     Indication: OSTEOPOROSIS
     Route: 048
     Dates: start: 20050901, end: 20091001
  2. VITAMINS (UNSPECIFIED) [Concomitant]
     Route: 048
     Dates: start: 20041201
  3. CALCIUM (UNSPECIFIED) AND VITAMIN D (UNSPECIFIED) [Concomitant]
     Route: 048
     Dates: start: 20041201
  4. FOSAMAX [Suspect]
     Indication: OSTEOPOROSIS
     Route: 048
     Dates: start: 20041201, end: 20050801

REACTIONS (5)
  - FEMUR FRACTURE [None]
  - PAIN IN EXTREMITY [None]
  - DEVICE FAILURE [None]
  - LOW TURNOVER OSTEOPATHY [None]
  - NERVE COMPRESSION [None]
